FAERS Safety Report 8785836 (Version 2)
Quarter: 2012Q4

REPORT INFORMATION
  Report Type: 
  Country: AU (occurrence: AU)
  Receive Date: 20120914
  Receipt Date: 20121004
  Transmission Date: 20130627
  Serious: Yes (Other)
  Sender: FDA-Public Use
  Company Number: PHHY2012AU079778

PATIENT
  Age: 72 Year
  Sex: Female

DRUGS (7)
  1. ACLASTA [Suspect]
     Indication: OSTEOPOROSIS
     Dosage: 5 mg, UNK
     Route: 042
     Dates: start: 20110902
  2. TRAVATAN [Concomitant]
     Indication: GLAUCOMA
     Dosage: UNK UKN, once nightly in right eye
  3. CARTIA [Concomitant]
     Indication: MYOCARDIAL ISCHAEMIA
     Dosage: 100 mg, daily
     Route: 048
  4. LIPITOR [Concomitant]
     Indication: MYOCARDIAL ISCHAEMIA
     Dosage: 20 mg, daily
     Route: 048
     Dates: start: 2006
  5. MEGAFOL [Concomitant]
     Indication: MYOCARDIAL ISCHAEMIA
     Dosage: 0.5 mg, daily
     Route: 048
     Dates: start: 2007
  6. NOTEN [Concomitant]
     Indication: MYOCARDIAL ISCHAEMIA
     Dosage: 25 mg, daily
     Route: 048
     Dates: start: 2006
  7. TRITACE [Concomitant]
     Indication: MYOCARDIAL ISCHAEMIA
     Dosage: 10 mg, daily
     Route: 048
     Dates: start: 2006

REACTIONS (4)
  - Chest pain [Recovered/Resolved]
  - Hyperhidrosis [Recovered/Resolved]
  - Influenza [Recovered/Resolved]
  - Drug intolerance [Unknown]
